FAERS Safety Report 25796069 (Version 1)
Quarter: 2025Q3

REPORT INFORMATION
  Report Type: Spontaneous
  Country: BR (occurrence: BR)
  Receive Date: 20250912
  Receipt Date: 20250912
  Transmission Date: 20251020
  Serious: Yes (Other)
  Sender: IPSEN BIOPHARMACEUTICALS, INC.
  Company Number: BR-IPSEN Group, Research and Development-2025-22414

PATIENT
  Sex: Female
  Weight: 82 kg

DRUGS (1)
  1. LANREOTIDE ACETATE [Suspect]
     Active Substance: LANREOTIDE ACETATE
     Indication: Product used for unknown indication

REACTIONS (7)
  - Blindness [Unknown]
  - Cataract [Unknown]
  - Incorrect route of product administration [Unknown]
  - Injection site pain [Unknown]
  - Nausea [Unknown]
  - Headache [Unknown]
  - Eye infection [Unknown]
